FAERS Safety Report 15028316 (Version 1)
Quarter: 2018Q2

REPORT INFORMATION
  Report Type: Spontaneous
  Country: CR (occurrence: CR)
  Receive Date: 20180619
  Receipt Date: 20180619
  Transmission Date: 20180711
  Serious: Yes (Other)
  Sender: FDA-Public Use
  Company Number: CR-ABBVIE-18P-039-2393211-00

PATIENT
  Age: 35 Year
  Sex: Female

DRUGS (2)
  1. CLARITHROMYCIN. [Suspect]
     Active Substance: CLARITHROMYCIN
     Indication: ANTIBIOTIC PROPHYLAXIS
     Route: 065
  2. ENANTUYM [Concomitant]
     Indication: POSTOPERATIVE ANALGESIA

REACTIONS (6)
  - Gastrointestinal necrosis [Unknown]
  - Abdominal pain upper [Unknown]
  - Pyrexia [Unknown]
  - Gastritis [Unknown]
  - Vomiting [Unknown]
  - Discomfort [Unknown]
